FAERS Safety Report 24161760 (Version 1)
Quarter: 2024Q3

REPORT INFORMATION
  Report Type: Spontaneous
  Country: US (occurrence: None)
  Receive Date: 20240731
  Receipt Date: 20240731
  Transmission Date: 20241017
  Serious: Yes (Hospitalization)
  Sender: Public
  Company Number: None

PATIENT
  Age: 43 Year
  Sex: Male

DRUGS (6)
  1. AMBRISENTAN [Suspect]
     Active Substance: AMBRISENTAN
     Indication: Pulmonary arterial hypertension
     Dosage: FREQUENCY : DAILY;?
     Route: 048
     Dates: start: 20230217
  2. SILDENAFIL [Concomitant]
  3. FUROSEMIDE [Concomitant]
  4. ESCITALOPRAM [Concomitant]
  5. BISOPROLOL [Concomitant]
  6. Calcium Carbonate-vit D3 [Concomitant]

REACTIONS (2)
  - Cardiac failure [None]
  - Polycythaemia [None]

NARRATIVE: CASE EVENT DATE: 20240729
